FAERS Safety Report 5388921-7 (Version None)
Quarter: 2007Q3

REPORT INFORMATION
  Report Type: 
  Country: None (occurrence: None)
  Receive Date: 20070713
  Receipt Date: 20070713
  Transmission Date: 20080115
  Serious: Yes (Hospitalization)
  Sender: FDA-Public Use
  Company Number: None

PATIENT
  Sex: Female
  Weight: 58.8 kg

DRUGS (17)
  1. MEGACE [Suspect]
     Indication: WEIGHT DECREASED
     Dosage: 20 ML DAILY PO
     Route: 048
     Dates: start: 20070508
  2. IRON [Concomitant]
  3. LISINOPRIL [Concomitant]
  4. COUMADIN [Concomitant]
  5. PHENERGAN HCL [Concomitant]
  6. IMODIUM [Concomitant]
  7. ZOFRAN [Concomitant]
  8. FLAGYL [Concomitant]
  9. PROTONIX [Concomitant]
  10. DILAUDID [Concomitant]
  11. ERBITUX [Concomitant]
  12. CPT-11 [Concomitant]
  13. ZOSYN [Concomitant]
  14. MORPHINE [Concomitant]
  15. POTASSIUM CHLORIDE [Concomitant]
  16. TYLENOL [Concomitant]
  17. BENEDRYL [Concomitant]

REACTIONS (3)
  - ABDOMINAL PAIN LOWER [None]
  - ASTHENIA [None]
  - DIARRHOEA [None]
